FAERS Safety Report 7180163-8 (Version None)
Quarter: 2010Q4

REPORT INFORMATION
  Report Type: 
  Country: None (occurrence: None)
  Receive Date: 20101221
  Receipt Date: 20101216
  Transmission Date: 20110411
  Serious: Yes (Congenital Anomaly)
  Sender: FDA-Public Use
  Company Number: DE-GILEAD-2010-0032819

PATIENT
  Sex: Male
  Weight: 0.86 kg

DRUGS (3)
  1. TRUVADA [Suspect]
     Indication: HIV INFECTION
     Route: 064
     Dates: start: 20071016
  2. REYATAZ [Concomitant]
     Route: 064
     Dates: start: 20071016
  3. NORVIR [Concomitant]
     Dates: start: 20061001

REACTIONS (3)
  - BRONCHOPULMONARY DYSPLASIA [None]
  - DEVELOPMENTAL DELAY [None]
  - PATENT DUCTUS ARTERIOSUS [None]
